FAERS Safety Report 7016915-4 (Version None)
Quarter: 2010Q3

REPORT INFORMATION
  Report Type: 
  Country: None (occurrence: None)
  Receive Date: 20100927
  Receipt Date: 20100915
  Transmission Date: 20110219
  Serious: No
  Sender: FDA-Public Use
  Company Number: US-PFIZER INC-2010094189

PATIENT
  Sex: Female
  Weight: 81.633 kg

DRUGS (3)
  1. XALATAN [Suspect]
     Indication: OPTIC NERVE DISORDER
     Dosage: ONE DROP IN EACH EYE AT NIGHT
     Route: 047
     Dates: start: 20080101
  2. VITAMIN D [Suspect]
     Indication: BLOOD CALCIUM DECREASED
     Dosage: 50000 UNITS WEEKLY
     Route: 048
     Dates: start: 20100601, end: 20100601
  3. LEVOTHYROXINE [Concomitant]
     Indication: HYPOTHYROIDISM
     Dosage: UNK

REACTIONS (1)
  - ALOPECIA [None]
